FAERS Safety Report 5027386-1 (Version None)
Quarter: 2006Q2

REPORT INFORMATION
  Report Type: 
  Country: None (occurrence: None)
  Receive Date: 20060501
  Receipt Date: 20060222
  Transmission Date: 20061013
  Serious: Yes (Other)
  Sender: FDA-Public Use
  Company Number: 200611052BWH

PATIENT
  Age: 51 Year
  Sex: Male

DRUGS (2)
  1. NEXAVAR [Suspect]
     Indication: RENAL CELL CARCINOMA STAGE UNSPECIFIED
     Dosage: SEE IMAGE, ORAL
     Route: 048
     Dates: start: 20060208, end: 20060217
  2. NEXAVAR [Suspect]
     Indication: RENAL CELL CARCINOMA STAGE UNSPECIFIED
     Dosage: SEE IMAGE, ORAL
     Route: 048
     Dates: start: 20060221

REACTIONS (5)
  - BLOOD URINE PRESENT [None]
  - CHEST PAIN [None]
  - HEADACHE [None]
  - PAIN IN EXTREMITY [None]
  - RASH GENERALISED [None]
